FAERS Safety Report 10203243 (Version 4)
Quarter: 2018Q1

REPORT INFORMATION
  Report Type: Report from Study
  Country: US (occurrence: US)
  Receive Date: 20140529
  Receipt Date: 20180327
  Transmission Date: 20180508
  Serious: Yes (Hospitalization, Other)
  Sender: FDA-Public Use
  Company Number: US-ROCHE-1408887

PATIENT
  Age: 9 Year
  Sex: Female
  Weight: 24.1 kg

DRUGS (5)
  1. ENSURE [Concomitant]
     Active Substance: AMINO ACIDS\DEXTROSE\ELECTROLYTES NOS\SOYBEAN OIL\VITAMINS
     Dosage: 2-3 TIME S A DAY
     Route: 065
  2. NUTROPIN AQ [Suspect]
     Active Substance: SOMATROPIN
     Indication: SMALL FOR DATES BABY
     Route: 058
  3. NUTROPIN AQ [Suspect]
     Active Substance: SOMATROPIN
     Indication: BODY HEIGHT BELOW NORMAL
     Route: 058
  4. NUTROPIN AQ [Suspect]
     Active Substance: SOMATROPIN
     Indication: GROWTH RETARDATION
     Dosage: NIGHTLY
     Route: 058
  5. NUTROPIN AQ [Suspect]
     Active Substance: SOMATROPIN
     Route: 058

REACTIONS (13)
  - Injection site hypertrophy [Unknown]
  - Haemangioma [Unknown]
  - Bone pain [Unknown]
  - Pain in extremity [Unknown]
  - Growth retardation [Unknown]
  - Deformity of orbit [Unknown]
  - Scoliosis [Unknown]
  - Respiratory distress [Unknown]
  - Headache [Not Recovered/Not Resolved]
  - Injection site pain [Unknown]
  - Epistaxis [Unknown]
  - Dizziness [Not Recovered/Not Resolved]
  - Arthralgia [Unknown]

NARRATIVE: CASE EVENT DATE: 20140305
